FAERS Safety Report 12869214 (Version 2)
Quarter: 2017Q1

REPORT INFORMATION
  Report Type: Report from Study
  Country: US (occurrence: US)
  Receive Date: 20161020
  Receipt Date: 20170124
  Transmission Date: 20170428
  Serious: No
  Sender: FDA-Public Use
  Company Number: US-AMGEN-USASL2016102128

PATIENT
  Age: 54 Year
  Sex: Female
  Weight: 81.18 kg

DRUGS (1)
  1. REPATHA [Suspect]
     Active Substance: EVOLOCUMAB
     Indication: HYPERLIPIDAEMIA
     Dosage: 140 MG, Q2WK
     Route: 058
     Dates: start: 20151117, end: 20160524

REACTIONS (4)
  - Influenza like illness [Recovered/Resolved]
  - Adverse drug reaction [Unknown]
  - Fluid retention [Unknown]
  - Extra dose administered [Unknown]
